FAERS Safety Report 11264500 (Version 1)
Quarter: 2015Q3

REPORT INFORMATION
  Report Type: Spontaneous
  Country: BR (occurrence: BR)
  Receive Date: 20150713
  Receipt Date: 20150713
  Transmission Date: 20151125
  Serious: Yes (Death, Other)
  Sender: FDA-Public Use
  Company Number: BR-BRISTOL-MYERS SQUIBB COMPANY-BMS-2015-045377

PATIENT
  Sex: Female

DRUGS (2)
  1. MEGESTAT [Suspect]
     Active Substance: MEGESTROL ACETATE
     Indication: METASTASES TO CENTRAL NERVOUS SYSTEM
     Dosage: 160 MG, BID
     Route: 048
     Dates: start: 20150502
  2. CLEXANE [Suspect]
     Active Substance: ENOXAPARIN SODIUM
     Indication: PRODUCT USED FOR UNKNOWN INDICATION
     Dosage: 0.4 ML, UNK
     Route: 065

REACTIONS (1)
  - Death [Fatal]

NARRATIVE: CASE EVENT DATE: 20150610
